FAERS Safety Report 17126376 (Version 1)
Quarter: 2019Q4

REPORT INFORMATION
  Report Type: Spontaneous
  Country: US (occurrence: US)
  Receive Date: 20191209
  Receipt Date: 20191209
  Transmission Date: 20200122
  Serious: No
  Sender: FDA-Public Use
  Company Number: US-UCBSA-2017006619

PATIENT
  Sex: Female

DRUGS (1)
  1. CIMZIA [Suspect]
     Active Substance: CERTOLIZUMAB PEGOL
     Indication: PSORIASIS
     Dosage: 400 MG, EV 4 WEEKS
     Route: 058

REACTIONS (8)
  - Malaise [Unknown]
  - Dyspnoea [Unknown]
  - Nausea [Unknown]
  - Influenza like illness [Unknown]
  - Intentional product misuse [Unknown]
  - Pyrexia [Unknown]
  - Headache [Unknown]
  - Dizziness [Unknown]
